FAERS Safety Report 21995700 (Version 2)
Quarter: 2023Q1

REPORT INFORMATION
  Report Type: Spontaneous
  Country: US (occurrence: US)
  Receive Date: 20230215
  Receipt Date: 20230307
  Transmission Date: 20230418
  Serious: No
  Sender: FDA-Public Use
  Company Number: US-SA-SAC20230215000103

PATIENT
  Sex: Male

DRUGS (1)
  1. DUPIXENT [Suspect]
     Active Substance: DUPILUMAB
     Dosage: 300MG; OTHER
     Route: 058

REACTIONS (3)
  - Injection site swelling [Recovered/Resolved]
  - Product storage error [Unknown]
  - Product preparation error [Unknown]
